FAERS Safety Report 7666191-4 (Version None)
Quarter: 2011Q3

REPORT INFORMATION
  Report Type: 
  Country: None (occurrence: None)
  Receive Date: 20110806
  Receipt Date: 20110624
  Transmission Date: 20111222
  Serious: No
  Sender: FDA-Public Use
  Company Number: US-ABBOTT-11P-163-0834504-00

PATIENT
  Sex: Male
  Weight: 90.8 kg

DRUGS (3)
  1. UNKNOWN STATIN [Concomitant]
     Indication: BLOOD CHOLESTEROL INCREASED
     Route: 048
  2. NIASPAN [Suspect]
     Indication: HIGH DENSITY LIPOPROTEIN DECREASED
  3. NIASPAN [Suspect]
     Indication: LOW DENSITY LIPOPROTEIN INCREASED
     Route: 048
     Dates: start: 20110622, end: 20110623

REACTIONS (4)
  - PRURITUS [None]
  - CHILLS [None]
  - HYPERHIDROSIS [None]
  - FLUSHING [None]
